FAERS Safety Report 20745558 (Version 1)
Quarter: 2022Q2

REPORT INFORMATION
  Report Type: Spontaneous
  Country: FR (occurrence: FR)
  Receive Date: 20220425
  Receipt Date: 20220425
  Transmission Date: 20220721
  Serious: Yes (Death, Other)
  Sender: FDA-Public Use
  Company Number: FR-JAZZ-2022-FR-012875

PATIENT

DRUGS (1)
  1. DEFITELIO [Suspect]
     Active Substance: DEFIBROTIDE SODIUM
     Indication: Venoocclusive disease
     Route: 042

REACTIONS (6)
  - Disease progression [Fatal]
  - Stem cell transplant [Fatal]
  - Infection [Unknown]
  - Haemorrhage [Unknown]
  - Hypotension [Unknown]
  - Off label use [Unknown]
